FAERS Safety Report 9938036 (Version 2)
Quarter: 2014Q1

REPORT INFORMATION
  Report Type: Spontaneous
  Country: TR (occurrence: TR)
  Receive Date: 20140303
  Receipt Date: 20140318
  Transmission Date: 20141002
  Serious: Yes (Other)
  Sender: FDA-Public Use
  Company Number: TR-TEVA-466203ISR

PATIENT
  Age: 70 Year
  Sex: Male

DRUGS (3)
  1. GABAPENTIN [Suspect]
     Indication: DIABETIC NEUROPATHY
     Dosage: 3 X 300MG, INCREASED GRADUALLY
     Route: 065
  2. PRAMIPEXOLE [Suspect]
     Indication: RESTLESS LEGS SYNDROME
     Dosage: 3 X 0.125MG
     Route: 065
  3. PREGABALIN [Suspect]
     Indication: DIABETIC NEUROPATHY
     Dosage: DAILY
     Route: 065

REACTIONS (1)
  - Dyskinesia [Recovered/Resolved]
